FAERS Safety Report 5065094-1 (Version None)
Quarter: 2006Q3

REPORT INFORMATION
  Report Type: 
  Country: None (occurrence: None)
  Receive Date: 20060727
  Receipt Date: 20060727
  Transmission Date: 20061208
  Serious: Yes (Other)
  Sender: FDA-Public Use
  Company Number: None

PATIENT
  Age: 47 Year
  Sex: Male
  Weight: 90.7194 kg

DRUGS (2)
  1. PEG-INTRON [Suspect]
     Indication: HEPATITIS C VIRUS
     Dosage: INJECT 0.5 ML SUB-Q ONCE   WEEKLY
     Route: 058
     Dates: start: 20060512, end: 20060715
  2. RIBASHPHERE   200MG   THREE RIVERS PHARMACEUTIC [Suspect]
     Indication: HEPATITIS C VIRUS
     Dosage: 3 CAPSULES   TWICE DAILY   PO
     Route: 048
     Dates: start: 20060508, end: 20060719

REACTIONS (4)
  - DRUG EFFECT DECREASED [None]
  - EYE PAIN [None]
  - MIGRAINE [None]
  - RETINITIS [None]
